FAERS Safety Report 7374506-X (Version None)
Quarter: 2011Q1

REPORT INFORMATION
  Report Type: 
  Country: None (occurrence: None)
  Receive Date: 20110325
  Receipt Date: 20110126
  Transmission Date: 20110831
  Serious: No
  Sender: FDA-Public Use
  Company Number: US-MYLANLABS-2011S1001998

PATIENT
  Sex: Female

DRUGS (3)
  1. FENTANYL-100 [Suspect]
     Indication: CYSTITIS INTERSTITIAL
     Dosage: CHANGED Q. 72 HOURS.
     Route: 062
  2. MORPHINE [Concomitant]
     Indication: PAIN
  3. TRAZODONE HCL [Interacting]
     Indication: SLEEP DISORDER
     Route: 048

REACTIONS (4)
  - CHEST DISCOMFORT [None]
  - WEIGHT DECREASED [None]
  - SUFFOCATION FEELING [None]
  - DRUG INTERACTION [None]
